FAERS Safety Report 5082237-4 (Version None)
Quarter: 2006Q3

REPORT INFORMATION
  Report Type: 
  Country: None (occurrence: None)
  Receive Date: 20060815
  Receipt Date: 20060815
  Transmission Date: 20061208
  Serious: Yes (Hospitalization)
  Sender: FDA-Public Use
  Company Number: None

PATIENT
  Sex: Female
  Weight: 90.9 kg

DRUGS (2)
  1. DOXORUBICIN HYDROCHLORIDE [Suspect]
     Dosage: 120 MG
  2. CYCLOPHOSPHAMIDE [Suspect]
     Dosage: 1200 MG

REACTIONS (2)
  - PULMONARY EMBOLISM [None]
  - WHITE BLOOD CELL COUNT INCREASED [None]
